FAERS Safety Report 8058366-X (Version None)
Quarter: 2012Q1

REPORT INFORMATION
  Report Type: 
  Country: None (occurrence: None)
  Receive Date: 20120120
  Receipt Date: 20120110
  Transmission Date: 20120608
  Serious: Yes (Hospitalization)
  Sender: FDA-Public Use
  Company Number: US-BAYER-2011-038705

PATIENT
  Age: 22 Year
  Sex: Female
  Weight: 58.05 kg

DRUGS (5)
  1. MAXALT [Concomitant]
     Indication: MIGRAINE
     Dosage: UNK UNK, PRN
  2. MUCINEX [Concomitant]
     Indication: COUGH
  3. BACTRIM DS [Concomitant]
     Dosage: 800 MG, BID
  4. YAZ [Suspect]
     Indication: CONTRACEPTION
     Dosage: UNK
     Dates: start: 20060501, end: 20080401
  5. TESSALON [Concomitant]
     Dosage: 100 MG, TID, AS NEEDED

REACTIONS (7)
  - CHOLECYSTITIS CHRONIC [None]
  - PAIN [None]
  - ANHEDONIA [None]
  - GALLBLADDER DISORDER [None]
  - INJURY [None]
  - ANXIETY [None]
  - BILIARY DYSKINESIA [None]
